FAERS Safety Report 16409496 (Version 1)
Quarter: 2019Q2

REPORT INFORMATION
  Report Type: Spontaneous
  Country: US (occurrence: US)
  Receive Date: 20190610
  Receipt Date: 20190610
  Transmission Date: 20190711
  Serious: No
  Sender: FDA-Public Use
  Company Number: US-PFIZER INC-2019246150

PATIENT
  Age: 52 Year
  Sex: Male
  Weight: 61.22 kg

DRUGS (1)
  1. XELJANZ XR [Suspect]
     Active Substance: TOFACITINIB CITRATE
     Indication: RHEUMATOID ARTHRITIS
     Dosage: 11 MG, UNK(1TABLET ORALLY)
     Route: 048
     Dates: start: 20190121

REACTIONS (1)
  - Drug ineffective [Unknown]
